FAERS Safety Report 24444894 (Version 1)
Quarter: 2024Q4

REPORT INFORMATION
  Report Type: Spontaneous
  Country: US (occurrence: US)
  Receive Date: 20241016
  Receipt Date: 20241016
  Transmission Date: 20250115
  Serious: No
  Sender: Unknown Manufacturer
  Company Number: US-SHIELD THERAPEUTICS-US-STX-23-00101

PATIENT
  Age: 54 Year
  Sex: Female

DRUGS (1)
  1. ACCRUFER [Suspect]
     Active Substance: FERRIC MALTOL
     Indication: Product used for unknown indication
     Dosage: 30 MILLIGRAM, BID,  1 HOUR BEFORE OR 2 HOURS AFTER MEALS
     Route: 048

REACTIONS (2)
  - Swelling face [Unknown]
  - Mouth swelling [Unknown]
